FAERS Safety Report 6452712-6 (Version None)
Quarter: 2009Q4

REPORT INFORMATION
  Report Type: 
  Country: None (occurrence: None)
  Receive Date: 20091123
  Receipt Date: 20091123
  Transmission Date: 20100525
  Serious: Yes (Other)
  Sender: FDA-Public Use
  Company Number: None

PATIENT
  Age: 33 Year
  Sex: Female
  Weight: 59.1 kg

DRUGS (1)
  1. MIRENA [Suspect]

REACTIONS (3)
  - ARTHRALGIA [None]
  - FIBROMYALGIA [None]
  - MYALGIA [None]
